FAERS Safety Report 8825378 (Version 1)
Quarter: 2012Q4

REPORT INFORMATION
  Report Type: 
  Country: RU (occurrence: RU)
  Receive Date: 20121004
  Receipt Date: 20121004
  Transmission Date: 20130627
  Serious: Yes (Death)
  Sender: FDA-Public Use
  Company Number: RU-BRISTOL-MYERS SQUIBB COMPANY-16991341

PATIENT
  Age: 36 Year
  Sex: Female

DRUGS (1)
  1. PROCAINAMIDE HYDROCHLORIDE [Suspect]
     Indication: ANGINA PECTORIS
     Route: 042
     Dates: start: 20000831

REACTIONS (1)
  - Anaphylactic shock [Fatal]
